FAERS Safety Report 5503695-4 (Version None)
Quarter: 2007Q4

REPORT INFORMATION
  Report Type: 
  Country: None (occurrence: None)
  Receive Date: 20071101
  Receipt Date: 20071023
  Transmission Date: 20080405
  Serious: Yes (Hospitalization, Other)
  Sender: FDA-Public Use
  Company Number: DE-JNJFOC-20070901955

PATIENT
  Sex: Male
  Weight: 74.5 kg

DRUGS (3)
  1. REMICADE [Suspect]
     Indication: COLITIS ULCERATIVE
     Dosage: RECEIVED 3 DOSINGS ON UNKNOWN DATES
     Route: 042
  2. AZATHIOPRINE [Concomitant]
  3. PREDNISOLONE [Concomitant]

REACTIONS (4)
  - LARGE INTESTINE PERFORATION [None]
  - LYMPHOMA [None]
  - PERITONITIS [None]
  - VENA CAVA THROMBOSIS [None]
